FAERS Safety Report 5033699-X (Version None)
Quarter: 2006Q2

REPORT INFORMATION
  Report Type: 
  Country: None (occurrence: None)
  Receive Date: 20060623
  Receipt Date: 20060614
  Transmission Date: 20061013
  Serious: Yes (Hospitalization)
  Sender: FDA-Public Use
  Company Number: PHRM2006FR01780

PATIENT
  Age: 69 Year
  Sex: Female

DRUGS (8)
  1. TRILEPTAL [Suspect]
     Dosage: 3 DF/DAY
     Route: 048
     Dates: end: 20060505
  2. FLUDEX [Concomitant]
     Dosage: 1 DF/DAY
     Route: 048
     Dates: end: 20060505
  3. TRIMETAZIDINE [Concomitant]
     Dosage: 2 DF/DAY
     Route: 048
  4. PLAVIX [Concomitant]
     Dosage: 1 DF/DAY
     Route: 048
  5. LAROXYL [Concomitant]
     Dosage: 50 MG/DAY
     Route: 048
  6. PRAVASTATIN [Concomitant]
     Dosage: 20 MG/DAY
     Route: 048
  7. ATENOLOL [Concomitant]
     Dosage: 50 MG, QD
  8. MOTILIUM [Concomitant]
     Indication: NAUSEA
     Dosage: PRN

REACTIONS (8)
  - BLOOD CHLORIDE DECREASED [None]
  - DIZZINESS [None]
  - FLUID INTAKE RESTRICTION [None]
  - HYPONATRAEMIA [None]
  - NAUSEA [None]
  - PAIN [None]
  - PELVIC PAIN [None]
  - VOMITING [None]
